FAERS Safety Report 22987258 (Version 2)
Quarter: 2023Q4

REPORT INFORMATION
  Report Type: Spontaneous
  Country: JP (occurrence: JP)
  Receive Date: 20230926
  Receipt Date: 20231031
  Transmission Date: 20240110
  Serious: Yes (Death, Hospitalization)
  Sender: FDA-Public Use
  Company Number: JP-TEVA-2023-JP-2929808

PATIENT
  Age: 54 Year
  Sex: Female

DRUGS (11)
  1. PREDNISOLONE [Suspect]
     Active Substance: PREDNISOLONE
     Indication: Familial haemophagocytic lymphohistiocytosis
     Route: 065
     Dates: start: 2021
  2. CYCLOPHOSPHAMIDE [Suspect]
     Active Substance: CYCLOPHOSPHAMIDE
     Indication: Familial haemophagocytic lymphohistiocytosis
     Route: 065
     Dates: start: 2021
  3. DOXORUBICIN [Suspect]
     Active Substance: DOXORUBICIN
     Indication: Familial haemophagocytic lymphohistiocytosis
     Route: 065
     Dates: start: 2021
  4. VINCRISTINE [Suspect]
     Active Substance: VINCRISTINE
     Indication: Familial haemophagocytic lymphohistiocytosis
     Route: 065
     Dates: start: 2021
  5. TACROLIMUS [Suspect]
     Active Substance: TACROLIMUS
     Indication: Prophylaxis against graft versus host disease
     Route: 065
     Dates: start: 2021
  6. CYCLOSPORINE [Suspect]
     Active Substance: CYCLOSPORINE
     Indication: Familial haemophagocytic lymphohistiocytosis
     Route: 065
     Dates: start: 2021
  7. METHOTREXATE [Concomitant]
     Active Substance: METHOTREXATE
     Indication: Prophylaxis against graft versus host disease
     Route: 065
     Dates: start: 2021
  8. DEXAMETHASONE [Concomitant]
     Active Substance: DEXAMETHASONE
     Indication: Familial haemophagocytic lymphohistiocytosis
     Route: 065
     Dates: start: 2021
  9. ETOPOSIDE [Concomitant]
     Active Substance: ETOPOSIDE
     Indication: Familial haemophagocytic lymphohistiocytosis
     Route: 065
     Dates: start: 2021
  10. FLUDARABINE [Concomitant]
     Active Substance: FLUDARABINE PHOSPHATE
     Indication: Bone marrow conditioning regimen
     Dosage: 180 MG/M2
     Route: 065
     Dates: start: 2021
  11. MELPHALAN [Concomitant]
     Active Substance: MELPHALAN
     Indication: Bone marrow conditioning regimen
     Dosage: 100 MG/M2
     Route: 065
     Dates: start: 2021

REACTIONS (3)
  - Thrombotic microangiopathy [Fatal]
  - Acute kidney injury [Unknown]
  - Drug ineffective [Unknown]

NARRATIVE: CASE EVENT DATE: 20210101
